FAERS Safety Report 20411899 (Version 7)
Quarter: 2022Q2

REPORT INFORMATION
  Report Type: Report from Study
  Country: MX (occurrence: MX)
  Receive Date: 20220201
  Receipt Date: 20220514
  Transmission Date: 20220721
  Serious: Yes (Other)
  Sender: FDA-Public Use
  Company Number: MX-NOVARTISPH-NVSC2022MX009438

PATIENT
  Age: 80 Year
  Sex: Male
  Weight: 55 kg

DRUGS (18)
  1. DIOVAN [Suspect]
     Active Substance: VALSARTAN
     Indication: Hypertension
     Dosage: 1 DOSAGE FORM, BID, (160MG)
     Route: 048
     Dates: start: 202104
  2. DIOVAN [Suspect]
     Active Substance: VALSARTAN
     Dosage: 3 DOSAGE FORM OF 160 MG, (2 IN THE MORNING AND 1 IN THE NIGHT)
     Route: 048
     Dates: start: 20211222
  3. DIOVAN [Suspect]
     Active Substance: VALSARTAN
     Dosage: 2 DOSAGE FORM OF 160 MG, QD
     Route: 048
     Dates: start: 20211222, end: 20220113
  4. DIOVAN [Suspect]
     Active Substance: VALSARTAN
     Dosage: 1 DOSAGE FORM, QD 160 MG
     Route: 048
     Dates: start: 20211222, end: 20220113
  5. DIOVAN [Suspect]
     Active Substance: VALSARTAN
     Dosage: 1 DOSAGE FORM (IN THE MORNING AND IN THE AFTERNOON)
     Route: 048
     Dates: start: 20211230
  6. DIOVAN [Suspect]
     Active Substance: VALSARTAN
     Dosage: 1 DOSAGE FORM, BID (ONE IN THE MORNING AND ONE AT NIGHT)
     Route: 048
     Dates: start: 202112
  7. DIOVAN [Suspect]
     Active Substance: VALSARTAN
     Dosage: 3 DOSAGE FORM OF 160 MG, QD
     Route: 048
     Dates: start: 20220114, end: 202204
  8. DIOVAN [Suspect]
     Active Substance: VALSARTAN
     Dosage: 2 DOSAGE FORM, BID, (160MG, AFTERNOON AND NIGHT)
     Route: 048
     Dates: start: 202201
  9. DIOVAN [Suspect]
     Active Substance: VALSARTAN
     Dosage: 2 DOSAGE FORM, BID (IN THE MORNING AND IN THE AFTERNOON)
     Route: 048
  10. DIOVAN [Suspect]
     Active Substance: VALSARTAN
     Dosage: 2 DOSAGE FORM (IN THE MORNING AND IN THE AFTERNOON)
     Route: 048
  11. DIOVAN [Suspect]
     Active Substance: VALSARTAN
     Dosage: 4 DOSAGE FORM, BID (TWO IN THE MORNING AND TWO AT NIGHT)
     Route: 048
     Dates: start: 202201
  12. DIOVAN [Suspect]
     Active Substance: VALSARTAN
     Dosage: 2 DOSAGE FORM, QD (160MG)
     Route: 048
     Dates: start: 202204
  13. DIOVAN [Suspect]
     Active Substance: VALSARTAN
     Dosage: 1 DOSAGE FORM, BID (160MG)
     Route: 048
     Dates: start: 20211230, end: 20220113
  14. DIOVAN [Suspect]
     Active Substance: VALSARTAN
     Dosage: 2 DOSAGE FORM, BID, (2 TABLETS IN THE MORNING AND 2 AT NIGHT)
     Route: 048
     Dates: start: 20220113
  15. INSULIN NOS [Concomitant]
     Active Substance: INSULIN NOS
     Indication: Diabetes mellitus
     Dosage: 7 IU (IN THE MORING, MORE THAN 1 YEAR AGO)
     Route: 059
  16. METFORMIN [Concomitant]
     Active Substance: METFORMIN HYDROCHLORIDE
     Indication: Diabetes mellitus
     Dosage: 1 DOSAGE FORM, QD 850 MG (20 YEARS AGO)
     Route: 048
  17. ASPIRIN [Concomitant]
     Active Substance: ASPIRIN
     Indication: Anticoagulation drug level above therapeutic
     Dosage: 1 DOSAGE FORM, QD(2 YEARS AGO)
     Route: 048
  18. PAROXETINE [Concomitant]
     Active Substance: PAROXETINE
     Indication: Anxiety
     Dosage: 1 DOSAGE FORM, QD (1 YEAR AGO)
     Route: 048

REACTIONS (10)
  - Blood pressure abnormal [Unknown]
  - General physical health deterioration [Recovered/Resolved]
  - Blood pressure increased [Recovered/Resolved]
  - Blood pressure increased [Recovered/Resolved]
  - Blood pressure increased [Recovered/Resolved]
  - Gait disturbance [Unknown]
  - Thyroid disorder [Not Recovered/Not Resolved]
  - General physical health deterioration [Recovering/Resolving]
  - Hypertension [Recovering/Resolving]
  - Off label use [Not Recovered/Not Resolved]

NARRATIVE: CASE EVENT DATE: 20211222
